FAERS Safety Report 7677468-0 (Version None)
Quarter: 2011Q3

REPORT INFORMATION
  Report Type: 
  Country: None (occurrence: None)
  Receive Date: 20110811
  Receipt Date: 20110331
  Transmission Date: 20111222
  Serious: Yes (Other)
  Sender: FDA-Public Use
  Company Number: US-BRISTOL-MYERS SQUIBB COMPANY-15648082

PATIENT
  Age: 49 Year
  Sex: Male

DRUGS (4)
  1. REYATAZ [Suspect]
     Indication: HIV INFECTION
     Dates: start: 20101104
  2. NORVIR [Concomitant]
  3. TRUVADA [Concomitant]
  4. LOTENSIN [Concomitant]

REACTIONS (1)
  - HEPATIC ENZYME INCREASED [None]
